FAERS Safety Report 4572605-9 (Version None)
Quarter: 2005Q1

REPORT INFORMATION
  Report Type: 
  Country: None (occurrence: None)
  Receive Date: 20050208
  Receipt Date: 20041005
  Transmission Date: 20050727
  Serious: Yes (Other)
  Sender: FDA-Public Use
  Company Number: 200413107JP

PATIENT
  Age: 44 Year
  Sex: Male
  Weight: 68 kg

DRUGS (3)
  1. ALLEGRA [Suspect]
     Indication: GAMMA-GLUTAMYLTRANSFERASE INCREASED
     Dosage: DOSE: 2 TABLETS
     Route: 048
     Dates: start: 20040911, end: 20041001
  2. ABOCOAT [Concomitant]
     Indication: ECZEMA
     Dosage: DOSE: 1-2 GRAMS/DAY
     Route: 003
     Dates: start: 20040911, end: 20041008
  3. ANTEBATE [Concomitant]
     Indication: ECZEMA
     Route: 003
     Dates: start: 20040911, end: 20040914

REACTIONS (3)
  - GAMMA-GLUTAMYLTRANSFERASE INCREASED [None]
  - LIVER FUNCTION TEST ABNORMAL [None]
  - TREATMENT NONCOMPLIANCE [None]
